FAERS Safety Report 24297368 (Version 1)
Quarter: 2024Q3

REPORT INFORMATION
  Report Type: Spontaneous
  Country: GB (occurrence: GB)
  Receive Date: 20240909
  Receipt Date: 20240909
  Transmission Date: 20241017
  Serious: No
  Sender: ALKEM
  Company Number: None

PATIENT
  Age: 78 Year
  Sex: Male
  Weight: 93 kg

DRUGS (5)
  1. PREGABALIN [Suspect]
     Active Substance: PREGABALIN
     Indication: Spinal osteoarthritis
     Dosage: 300 MILLIGRAM, QD (CAPSULE)
     Route: 065
     Dates: start: 20220630, end: 20230517
  2. DOXYCYCLINE [Concomitant]
     Active Substance: DOXYCYCLINE\DOXYCYCLINE HYCLATE
     Indication: Wound treatment
     Dosage: 200 MILLIGRAM, QD
     Route: 065
     Dates: start: 20230320, end: 20230502
  3. ERYTHROMYCIN [Concomitant]
     Active Substance: ERYTHROMYCIN
     Indication: Product used for unknown indication
     Dosage: UNK, QID (ONE TO BE TAKEN FOUR TIMES A DAY)
     Route: 065
     Dates: start: 20230505
  4. METFORMIN [Concomitant]
     Active Substance: METFORMIN HYDROCHLORIDE
     Indication: Insulin-requiring type 2 diabetes mellitus
     Dosage: 4 DOSAGE FORM, QD (TAKE FOUR TABLETS (2G) DAILY AS PER DIABETES NURSE SPECIALIST)
     Route: 065
     Dates: start: 20230324
  5. Vidprevtyn Beta [Concomitant]
     Indication: Product used for unknown indication
     Dosage: 0.5 MILLILITER, (0.5 ML INTRAMUSCULAR)
     Route: 030
     Dates: start: 20230428, end: 20230428

REACTIONS (1)
  - Dizziness [Recovered/Resolved]
